FAERS Safety Report 20026566 (Version 2)
Quarter: 2021Q4

REPORT INFORMATION
  Report Type: Report from Study
  Country: JP (occurrence: JP)
  Receive Date: 20211102
  Receipt Date: 20211118
  Transmission Date: 20220303
  Serious: No
  Sender: FDA-Public Use
  Company Number: JP-BRISTOL-MYERS SQUIBB COMPANY-BMS-2021-081158

PATIENT
  Age: 65 Year
  Sex: Male
  Weight: 63 kg

DRUGS (10)
  1. NIVOLUMAB [Suspect]
     Active Substance: NIVOLUMAB
     Indication: Gastric cancer
     Dosage: 360 MILLIGRAM, Q3WK
     Route: 041
     Dates: start: 20210315, end: 20210728
  2. ERIBULIN MESYLATE [Suspect]
     Active Substance: ERIBULIN MESYLATE
     Indication: Gastric cancer
     Dosage: 2.1 MG/M2(ACTUAL DOSE: 3.74MG), Q3W
     Route: 065
     Dates: start: 20210414
  3. ERIBULIN MESYLATE [Suspect]
     Active Substance: ERIBULIN MESYLATE
     Dosage: 1.7 MG/M2(ACTUAL DOSE: 2.97MG), Q3W
     Route: 065
     Dates: start: 20210512
  4. ERIBULIN MESYLATE [Suspect]
     Active Substance: ERIBULIN MESYLATE
     Dosage: 1.7 MG/M2(ACTUAL DOSE: 2.97MG), Q3W
     Route: 065
     Dates: start: 20210609
  5. ERIBULIN MESYLATE [Suspect]
     Active Substance: ERIBULIN MESYLATE
     Dosage: 1.1 MG/M2(ACTUAL DOSE: 1.92MG), Q3W
     Route: 065
     Dates: start: 20210708
  6. ERIBULIN MESYLATE [Suspect]
     Active Substance: ERIBULIN MESYLATE
     Dosage: 1.7 MG/M2(ACTUAL DOSE: 2.97MG), Q3W
     Route: 065
     Dates: start: 20210728, end: 20210728
  7. GASTER [Concomitant]
     Active Substance: FAMOTIDINE
     Indication: Prophylaxis
     Dosage: 20 MG
     Route: 042
     Dates: start: 20210414, end: 20210728
  8. CHLORPHENIRAMINE MALEATE [Concomitant]
     Active Substance: CHLORPHENIRAMINE MALEATE
     Indication: Prophylaxis
     Dosage: 10 MG
     Route: 042
     Dates: start: 20210414, end: 20210728
  9. ACETAMINOPHEN [Concomitant]
     Active Substance: ACETAMINOPHEN
     Indication: Prophylaxis
     Dosage: 1000 MG
     Route: 042
     Dates: start: 20210708, end: 20210728
  10. ALLEGRA [FEXOFENADINE HYDROCHLORIDE] [Concomitant]
     Indication: Prophylaxis
     Dosage: 60 MILLIGRAM
     Route: 048
     Dates: start: 20210512, end: 20210728

REACTIONS (2)
  - Overdose [Unknown]
  - Treatment noncompliance [Unknown]

NARRATIVE: CASE EVENT DATE: 20210609
